FAERS Safety Report 9031431 (Version 2)
Quarter: 2013Q1

REPORT INFORMATION
  Report Type: Report from Study
  Country: US (occurrence: US)
  Receive Date: 20130124
  Receipt Date: 20130225
  Transmission Date: 20140127
  Serious: Yes (Other)
  Sender: FDA-Public Use
  Company Number: US-ABBOTT-13P-163-1038330-00

PATIENT
  Age: 52 None
  Sex: Male
  Weight: 69.92 kg

DRUGS (3)
  1. HUMIRA [Suspect]
     Indication: CROHN^S DISEASE
     Dates: start: 20080104
  2. IMODIUM [Concomitant]
     Indication: PRODUCT USED FOR UNKNOWN INDICATION
     Dosage: 2MG TWICE DAILY (AND UP TO 2 MORE AS NEEDED)
  3. SUPPLEMENTS [Concomitant]
     Indication: PRODUCT USED FOR UNKNOWN INDICATION

REACTIONS (7)
  - Anal fistula [Unknown]
  - Cholelithiasis [Unknown]
  - Diarrhoea [Unknown]
  - Defaecation urgency [Unknown]
  - Device malfunction [Unknown]
  - Drug dose omission [Unknown]
  - Crohn^s disease [Unknown]
